FAERS Safety Report 11981709 (Version 1)
Quarter: 2016Q1

REPORT INFORMATION
  Report Type: Report from Study
  Country: US (occurrence: US)
  Receive Date: 20160131
  Receipt Date: 20160131
  Transmission Date: 20160526
  Serious: No
  Sender: FDA-Public Use
  Company Number: US-AMGEN-USASL2016009032

PATIENT
  Sex: Male

DRUGS (1)
  1. ENBREL [Suspect]
     Active Substance: ETANERCEPT
     Indication: PRODUCT USED FOR UNKNOWN INDICATION
     Dosage: UNK
     Route: 065
     Dates: start: 20160123

REACTIONS (6)
  - Anal incontinence [Unknown]
  - Urinary incontinence [Unknown]
  - Nervousness [Unknown]
  - Pallor [Unknown]
  - Fatigue [Recovering/Resolving]
  - Injection site discomfort [Unknown]

NARRATIVE: CASE EVENT DATE: 20160123
